FAERS Safety Report 7089344-5 (Version None)
Quarter: 2010Q4

REPORT INFORMATION
  Report Type: 
  Country: None (occurrence: None)
  Receive Date: 20101108
  Receipt Date: 20101103
  Transmission Date: 20110411
  Serious: Yes (Death, Hospitalization)
  Sender: FDA-Public Use
  Company Number: DE-CELGENEUS-062-50794-10101403

PATIENT

DRUGS (1)
  1. VIDAZA [Suspect]
     Route: 065
     Dates: start: 20070430, end: 20070504

REACTIONS (2)
  - PNEUMONIA [None]
  - SEPSIS [None]
